FAERS Safety Report 11335600 (Version 2)
Quarter: 2015Q3

REPORT INFORMATION
  Report Type: Spontaneous
  Country: JP (occurrence: JP)
  Receive Date: 20150804
  Receipt Date: 20150821
  Transmission Date: 20151125
  Serious: Yes (Death, Hospitalization, Other)
  Sender: FDA-Public Use
  Company Number: JP-PFIZER INC-2015243131

PATIENT
  Age: 74 Year
  Sex: Female

DRUGS (13)
  1. MYSLEE [Concomitant]
     Active Substance: ZOLPIDEM TARTRATE
     Route: 065
  2. PLATHIAMIN [Concomitant]
     Indication: FLUID REPLACEMENT
     Dosage: 50 MG, UNK
     Route: 041
     Dates: start: 20150623, end: 20150716
  3. MAGNESIUM OXIDE. [Concomitant]
     Active Substance: MAGNESIUM OXIDE
     Route: 065
  4. NOVAMIN [Suspect]
     Active Substance: PROCHLORPERAZINE MALEATE
     Indication: NAUSEA
     Dosage: 5 MG, 3X/DAY
     Route: 048
     Dates: start: 20150623, end: 20150717
  5. RINDERON V [Concomitant]
     Active Substance: BETAMETHASONE VALERATE
     Route: 065
  6. JZOLOFT [Concomitant]
     Active Substance: SERTRALINE HYDROCHLORIDE
     Route: 048
  7. OXYCONTIN [Suspect]
     Active Substance: OXYCODONE HYDROCHLORIDE
     Indication: CANCER PAIN
     Dosage: 20 MG, 2X/DAY
     Route: 048
     Dates: start: 20150609, end: 20150717
  8. LOXONIN [Concomitant]
     Active Substance: LOXOPROFEN SODIUM
     Route: 065
  9. NEXIUM [Concomitant]
     Active Substance: ESOMEPRAZOLE MAGNESIUM
     Route: 065
  10. PROMAC [Concomitant]
     Active Substance: NITROFURANTOIN
     Route: 065
  11. LACTEC /00490001/ [Concomitant]
     Indication: FLUID REPLACEMENT
     Dosage: 250 ML, UNK
     Route: 041
     Dates: start: 20150623, end: 20150716
  12. LYRICA [Suspect]
     Active Substance: PREGABALIN
     Indication: CANCER PAIN
     Dosage: 75 MG, 1X/DAY
     Route: 048
     Dates: start: 20150715, end: 20150716
  13. VITAMIN C [Concomitant]
     Active Substance: ASCORBIC ACID
     Indication: FLUID REPLACEMENT
     Dosage: 500 MG, UNK
     Route: 041
     Dates: start: 20150623, end: 20150716

REACTIONS (5)
  - Gastric cancer [Fatal]
  - General physical health deterioration [Not Recovered/Not Resolved]
  - Blood pressure decreased [Not Recovered/Not Resolved]
  - Disease progression [Fatal]
  - Urinary retention [Recovered/Resolved]

NARRATIVE: CASE EVENT DATE: 20150716
